FAERS Safety Report 21229935 (Version 1)
Quarter: 2022Q3

REPORT INFORMATION
  Report Type: Spontaneous
  Country: US (occurrence: US)
  Receive Date: 20220818
  Receipt Date: 20220818
  Transmission Date: 20221026
  Serious: No
  Sender: FDA-Public Use
  Company Number: US-SA-SAC20220815000419

PATIENT
  Age: 67 Year
  Sex: Female

DRUGS (17)
  1. AUBAGIO [Suspect]
     Active Substance: TERIFLUNOMIDE
     Dosage: UNK
     Route: 065
  2. ATORVASTATIN [Concomitant]
     Active Substance: ATORVASTATIN
  3. BACLOFEN [Concomitant]
     Active Substance: BACLOFEN
  4. BIOTIN [Concomitant]
     Active Substance: BIOTIN
  5. BOTOX [Concomitant]
     Active Substance: ONABOTULINUMTOXINA
  6. DICLOFENAC [Concomitant]
     Active Substance: DICLOFENAC
  7. DULOXETINE [Concomitant]
     Active Substance: DULOXETINE
  8. HYDRALAZINE [Concomitant]
     Active Substance: HYDRALAZINE HYDROCHLORIDE
  9. HYDROCHLOROTHIAZIDE [Concomitant]
     Active Substance: HYDROCHLOROTHIAZIDE
     Indication: Hypertension
  10. LIDOCAINE [Concomitant]
     Active Substance: LIDOCAINE
  11. LORAZEPAM [Concomitant]
     Active Substance: LORAZEPAM
  12. MEMANTINE [Concomitant]
     Active Substance: MEMANTINE
  13. METOPROLOL [Concomitant]
     Active Substance: METOPROLOL
     Indication: Hypertension
  14. OXYBUTYNIN [Concomitant]
     Active Substance: OXYBUTYNIN
  15. PREGABALIN [Concomitant]
     Active Substance: PREGABALIN
  16. RESTASIS [Concomitant]
     Active Substance: CYCLOSPORINE
  17. TIZANIDINE [Concomitant]
     Active Substance: TIZANIDINE

REACTIONS (1)
  - Neuralgia [Unknown]
